FAERS Safety Report 9152678 (Version 2)
Quarter: 2013Q2

REPORT INFORMATION
  Report Type: Spontaneous
  Country: US (occurrence: US)
  Receive Date: 20130308
  Receipt Date: 20130412
  Transmission Date: 20140414
  Serious: Yes (Hospitalization)
  Sender: FDA-Public Use
  Company Number: US-ELI_LILLY_AND_COMPANY-US201302000543

PATIENT
  Age: 86 Year
  Sex: Female

DRUGS (14)
  1. FORTEO [Suspect]
     Indication: OSTEOPOROSIS
     Dosage: UNK, QD
     Dates: start: 20130125
  2. CELEBREX [Concomitant]
     Dosage: UNK
  3. TYLENOL                                 /SCH/ [Concomitant]
     Dosage: 500 MG, UNK
  4. ASPIRIN [Concomitant]
     Dosage: 81 MG, UNK
  5. OYSTER SHELL CALCIUM [Concomitant]
     Dosage: UNK
  6. ATORVASTATIN [Concomitant]
     Dosage: 20 MG, UNK
  7. MEGESTROL [Concomitant]
     Dosage: 40 MG, UNK
  8. MIDODRINE [Concomitant]
     Dosage: UNK
  9. OMEPRAZOLE [Concomitant]
     Dosage: UNK
  10. POTASSIUM [Concomitant]
     Dosage: UNK
  11. XARELTO [Concomitant]
     Dosage: UNK
  12. LISINOPRIL [Concomitant]
     Dosage: UNK
  13. SENOKOT [Concomitant]
     Dosage: UNK
  14. LEVAQUIN [Concomitant]
     Dosage: UNK

REACTIONS (7)
  - Cardiac failure congestive [Unknown]
  - Pneumonia [Unknown]
  - Cystitis [Not Recovered/Not Resolved]
  - Chest discomfort [Unknown]
  - Chest pain [Unknown]
  - Discomfort [Unknown]
  - Malaise [Unknown]
